FAERS Safety Report 25740011 (Version 2)
Quarter: 2025Q4

REPORT INFORMATION
  Report Type: Spontaneous
  Country: US (occurrence: US)
  Receive Date: 20250829
  Receipt Date: 20251001
  Transmission Date: 20260117
  Serious: No
  Sender: CIPLA
  Company Number: US-CIPLA LTD.-2024US09946

PATIENT

DRUGS (1)
  1. ALENDRONATE [Suspect]
     Active Substance: ALENDRONATE SODIUM
     Indication: Osteoporosis
     Dosage: UNK
     Route: 065
     Dates: start: 202408, end: 2024

REACTIONS (11)
  - Pain [Unknown]
  - Musculoskeletal stiffness [Unknown]
  - Pain in extremity [Unknown]
  - Treatment noncompliance [Unknown]
  - Vomiting [Unknown]
  - Malaise [Unknown]
  - Myalgia [Unknown]
  - Arthralgia [Unknown]
  - Headache [Unknown]
  - Nausea [Unknown]
  - Bone pain [Unknown]

NARRATIVE: CASE EVENT DATE: 20240801
